FAERS Safety Report 17840065 (Version 1)
Quarter: 2020Q2

REPORT INFORMATION
  Report Type: Spontaneous
  Country: US (occurrence: US)
  Receive Date: 20200529
  Receipt Date: 20200529
  Transmission Date: 20200714
  Serious: Yes (Other)
  Sender: FDA-Public Use
  Company Number: None

PATIENT
  Age: 42 Year
  Sex: Female
  Weight: 57.6 kg

DRUGS (1)
  1. WBRX METERED DOSE INHALER [CANNABIDIOL\DEVICE\HERBALS] [Suspect]
     Active Substance: CANNABIDIOL\DEVICE\HERBALS
     Indication: ANALGESIC THERAPY
     Route: 055
     Dates: start: 20200521, end: 20200521

REACTIONS (1)
  - Throat irritation [None]

NARRATIVE: CASE EVENT DATE: 20200521
